FAERS Safety Report 10889171 (Version 1)
Quarter: 2015Q1

REPORT INFORMATION
  Report Type: Spontaneous
  Country: US (occurrence: US)
  Receive Date: 20150305
  Receipt Date: 20150305
  Transmission Date: 20150721
  Serious: No
  Sender: FDA-Public Use
  Company Number: US-ELI_LILLY_AND_COMPANY-US201304008808

PATIENT
  Age: 58 Year
  Sex: Female

DRUGS (7)
  1. FORTEO [Suspect]
     Active Substance: TERIPARATIDE
     Dosage: 20 UG, QD
     Route: 065
  2. DEXILANT [Concomitant]
     Active Substance: DEXLANSOPRAZOLE
     Indication: GASTRIC DISORDER
     Dosage: UNK, UNKNOWN
     Route: 065
  3. FORTEO [Suspect]
     Active Substance: TERIPARATIDE
     Indication: OSTEOPOROSIS
     Dosage: 20 UG, QD
     Route: 065
     Dates: start: 20121213
  4. FORTEO [Suspect]
     Active Substance: TERIPARATIDE
     Dosage: 20 UG, QD
     Route: 065
  5. FORTEO [Suspect]
     Active Substance: TERIPARATIDE
     Dosage: 20 UG, QD
     Route: 065
     Dates: end: 201501
  6. ADVIL [Concomitant]
     Active Substance: IBUPROFEN
     Indication: HEADACHE
  7. EXCEDRIN                           /00509701/ [Concomitant]
     Indication: HEADACHE
     Dosage: UNK, QD

REACTIONS (20)
  - Visual impairment [Unknown]
  - Malaise [Recovered/Resolved]
  - Fear [Unknown]
  - Asthenia [Unknown]
  - Feeling jittery [Unknown]
  - Feeling abnormal [Unknown]
  - Weight decreased [Unknown]
  - Muscle spasms [Recovered/Resolved]
  - Fatigue [Recovered/Resolved]
  - Asthenopia [Unknown]
  - Eye pain [Unknown]
  - Malaise [Recovered/Resolved]
  - Pain [Recovered/Resolved]
  - Myalgia [Unknown]
  - Abdominal pain upper [Recovered/Resolved]
  - Headache [Recovered/Resolved]
  - Stress [Not Recovered/Not Resolved]
  - Nausea [Recovered/Resolved]
  - Drug dose omission [Recovered/Resolved]
  - Incorrect drug administration duration [Unknown]

NARRATIVE: CASE EVENT DATE: 20121213
